FAERS Safety Report 9448176 (Version 1)
Quarter: 2013Q3

REPORT INFORMATION
  Report Type: Spontaneous
  Country: US (occurrence: None)
  Receive Date: 20130807
  Receipt Date: 20130807
  Transmission Date: 20140515
  Serious: Yes (Life-Threatening, Hospitalization, Disabling)
  Sender: FDA-Public Use
  Company Number: None

PATIENT
  Age: 79 Year
  Sex: Male
  Weight: 93.26 kg

DRUGS (21)
  1. PRIMAXIN [Suspect]
     Indication: OSTEOMYELITIS
     Route: 042
     Dates: start: 20130325, end: 20130506
  2. PRIMAXIN [Suspect]
     Indication: PSEUDOMONAS INFECTION
     Route: 042
     Dates: start: 20130325, end: 20130506
  3. ACETYLCYSTEINE [Concomitant]
  4. AMLODIPINE [Concomitant]
  5. ASPIRIN [Concomitant]
  6. ATENOLOL [Concomitant]
  7. CEFAZOLIN [Concomitant]
  8. CLOPIDOGREL [Concomitant]
  9. DOCUSATE SODIUM [Concomitant]
  10. ERTAPENEM [Concomitant]
  11. ESCITALOPRAM [Concomitant]
  12. FUROSEMIDE [Concomitant]
  13. HEPARIN [Concomitant]
  14. HYDROCHLOROTHIAZIDE [Concomitant]
  15. LEVOTHYROXINE [Concomitant]
  16. MAGNESIUM OXIDE [Concomitant]
  17. NILOTINIB [Concomitant]
  18. PANTOPRAZOLE [Concomitant]
  19. PRAVASTATIN [Concomitant]
  20. DILAUDID [Concomitant]
  21. LORTAB [Concomitant]

REACTIONS (4)
  - Renal failure acute [None]
  - Tubulointerstitial nephritis [None]
  - Dialysis [None]
  - Haemodialysis [None]
